FAERS Safety Report 21892814 (Version 1)
Quarter: 2023Q1

REPORT INFORMATION
  Report Type: Spontaneous
  Country: DK (occurrence: DK)
  Receive Date: 20230120
  Receipt Date: 20230120
  Transmission Date: 20230417
  Serious: Yes (Other)
  Sender: FDA-Public Use
  Company Number: DK-BAXTER-2023BAX010322

PATIENT
  Sex: Male
  Weight: 77 kg

DRUGS (15)
  1. DEXAMETHASONE [Suspect]
     Active Substance: DEXAMETHASONE
     Indication: Plasma cell myeloma
     Dosage: FOURTH LINE TREATMENT
     Route: 065
     Dates: start: 20221020, end: 20221219
  2. DEXAMETHASONE [Suspect]
     Active Substance: DEXAMETHASONE
     Indication: Plasma cell myeloma
     Dosage: FIRST LINE THERAPY, FEB-2019
     Route: 065
  3. DEXAMETHASONE [Suspect]
     Active Substance: DEXAMETHASONE
     Dosage: SECOND LINE TREATMENT
     Route: 065
     Dates: start: 20200819, end: 20220512
  4. DEXAMETHASONE [Suspect]
     Active Substance: DEXAMETHASONE
     Dosage: THIRD LINE TREATMENT
     Route: 065
     Dates: start: 20220926, end: 20221020
  5. LENALIDOMIDE [Suspect]
     Active Substance: LENALIDOMIDE
     Indication: Plasma cell myeloma
     Dosage: SECOND LINE TREATMENT
     Route: 065
     Dates: start: 20200819, end: 20220512
  6. LENALIDOMIDE [Suspect]
     Active Substance: LENALIDOMIDE
     Indication: Plasma cell myeloma
     Dosage: FIRST LINE THERAPY, FEB-2019
     Route: 065
  7. CYCLOPHOSPHAMIDE [Suspect]
     Active Substance: CYCLOPHOSPHAMIDE
     Indication: Plasma cell myeloma
     Dosage: FIRST LINE THERAPY, FEB-2019
     Route: 065
  8. POMALIDOMIDE [Suspect]
     Active Substance: POMALIDOMIDE
     Indication: Plasma cell myeloma
     Dosage: FOURTH LINE TREATMENT
     Route: 065
     Dates: start: 20221020, end: 20221219
  9. BORTEZOMIB [Suspect]
     Active Substance: BORTEZOMIB
     Indication: Plasma cell myeloma
     Dosage: THIRD LINE TREATMENT
     Route: 065
     Dates: start: 20220926, end: 20221020
  10. BORTEZOMIB [Suspect]
     Active Substance: BORTEZOMIB
     Indication: Plasma cell myeloma
     Dosage: FIRST LINE THERAPY, FEB-2019
     Route: 065
  11. CARFILZOMIB [Suspect]
     Active Substance: CARFILZOMIB
     Indication: Plasma cell myeloma
     Dosage: SECOND LINE TREATMENT
     Route: 065
     Dates: start: 20200819, end: 20220512
  12. MELPHALAN [Suspect]
     Active Substance: MELPHALAN
     Indication: Plasma cell myeloma
     Dosage: FIRST LINE THERAPY, FEB-2019 (HIGH-DOSE)
     Route: 065
  13. DARATUMUMAB [Suspect]
     Active Substance: DARATUMUMAB
     Indication: Plasma cell myeloma
     Dosage: FOURTH LINE TREATMENT
     Route: 065
     Dates: start: 20221020, end: 20221219
  14. DARATUMUMAB [Suspect]
     Active Substance: DARATUMUMAB
     Indication: Plasma cell myeloma
     Dosage: THIRD LINE TREATMENT
     Route: 065
     Dates: start: 20220926, end: 20221020
  15. ACYCLOVIR [Concomitant]
     Active Substance: ACYCLOVIR
     Indication: Product used for unknown indication

REACTIONS (4)
  - Plasma cell myeloma [Unknown]
  - Monoclonal immunoglobulin increased [Unknown]
  - Therapy partial responder [Unknown]
  - Rash [Unknown]

NARRATIVE: CASE EVENT DATE: 20200514
